FAERS Safety Report 6999000-7 (Version None)
Quarter: 2010Q3

REPORT INFORMATION
  Report Type: 
  Country: None (occurrence: None)
  Receive Date: 20100920
  Receipt Date: 20100120
  Transmission Date: 20110219
  Serious: No
  Sender: FDA-Public Use
  Company Number: US-ASTRAZENECA-2010SE02595

PATIENT
  Age: 45 Year
  Sex: Male

DRUGS (1)
  1. SEROQUEL XR [Suspect]
     Indication: SEASONAL AFFECTIVE DISORDER
     Route: 048
     Dates: start: 20100111

REACTIONS (1)
  - PREMATURE EJACULATION [None]
